FAERS Safety Report 9096673 (Version 2)
Quarter: 2013Q1

REPORT INFORMATION
  Report Type: Spontaneous
  Country: BE (occurrence: BE)
  Receive Date: 20130211
  Receipt Date: 20130314
  Transmission Date: 20140127
  Serious: Yes (Other)
  Sender: FDA-Public Use
  Company Number: BE-AMGEN-BELSP2013008259

PATIENT
  Age: 67 Year
  Sex: Female
  Weight: 67.7 kg

DRUGS (2)
  1. MIMPARA [Suspect]
     Indication: HYPERPARATHYROIDISM SECONDARY
     Dosage: UNK UNK, QD
     Dates: start: 20120807, end: 20130201
  2. PRAVASTATINE [Suspect]
     Indication: DYSLIPIDAEMIA
     Dosage: 20 MG, QD
     Dates: start: 20110224, end: 20130201

REACTIONS (1)
  - Liver function test abnormal [Recovering/Resolving]
